FAERS Safety Report 25127944 (Version 6)
Quarter: 2025Q2

REPORT INFORMATION
  Report Type: Spontaneous
  Country: FR (occurrence: FR)
  Receive Date: 20250327
  Receipt Date: 20250514
  Transmission Date: 20250717
  Serious: Yes (Hospitalization, Other)
  Sender: AUROBINDO
  Company Number: FR-STRAGNORDP-2024000439

PATIENT
  Age: 33 Year
  Sex: Female

DRUGS (9)
  1. DIAZEPAM [Suspect]
     Active Substance: DIAZEPAM
     Indication: Generalised tonic-clonic seizure
     Route: 042
  2. DIAZEPAM [Suspect]
     Active Substance: DIAZEPAM
     Indication: Status epilepticus
     Route: 042
  3. LACOSAMIDE [Suspect]
     Active Substance: LACOSAMIDE
     Indication: Status epilepticus
     Dosage: 200 MILLIGRAM, ONCE A DAY [200 MILLIGRAM, BEFORE BIRTH]
     Route: 065
  4. LACOSAMIDE [Suspect]
     Active Substance: LACOSAMIDE
     Indication: Epilepsy
     Route: 065
  5. LACOSAMIDE [Suspect]
     Active Substance: LACOSAMIDE
     Indication: Off label use
  6. LEVETIRACETAM [Suspect]
     Active Substance: LEVETIRACETAM
     Indication: Status epilepticus
     Route: 065
  7. LEVETIRACETAM [Suspect]
     Active Substance: LEVETIRACETAM
     Indication: Off label use
     Route: 065
  8. CLONAZEPAM [Suspect]
     Active Substance: CLONAZEPAM
     Indication: Status epilepticus
     Route: 065
  9. CLONAZEPAM [Concomitant]
     Active Substance: CLONAZEPAM
     Indication: Status epilepticus
     Dosage: 1 MILLIGRAM, ONCE A DAY
     Route: 065

REACTIONS (15)
  - Drug ineffective [Unknown]
  - Caesarean section [Recovered/Resolved]
  - Asthenia [Unknown]
  - Dizziness [Unknown]
  - Multiple-drug resistance [Unknown]
  - Nausea [Unknown]
  - Exposure during pregnancy [Unknown]
  - Exposure via breast milk [Unknown]
  - Live birth [Unknown]
  - Maternal exposure during breast feeding [Recovered/Resolved]
  - Normal newborn [Recovered/Resolved]
  - Off label use [Unknown]
  - Intentional product use issue [Recovered/Resolved]
  - Maternal exposure during pregnancy [Unknown]
  - Drug ineffective for unapproved indication [Unknown]
